FAERS Safety Report 17929321 (Version 1)
Quarter: 2020Q2

REPORT INFORMATION
  Report Type: Spontaneous
  Country: JP (occurrence: JP)
  Receive Date: 20200623
  Receipt Date: 20200623
  Transmission Date: 20200714
  Serious: Yes (Other)
  Sender: FDA-Public Use
  Company Number: NVSJ2020JP005990

PATIENT
  Age: 13 Year

DRUGS (1)
  1. SOMATROPIN BS S.C. INJECTION [Suspect]
     Active Substance: SOMATROPIN
     Indication: SHORT STATURE
     Dosage: 1MG/TIME
     Route: 058

REACTIONS (2)
  - Pyrexia [Recovering/Resolving]
  - Haemorrhagic diathesis [Recovering/Resolving]
